FAERS Safety Report 5774190-2 (Version None)
Quarter: 2008Q2

REPORT INFORMATION
  Report Type: 
  Country: None (occurrence: None)
  Receive Date: 20080616
  Receipt Date: 20080606
  Transmission Date: 20081010
  Serious: Yes (Hospitalization)
  Sender: FDA-Public Use
  Company Number: US-ABBOTT-08P-163-0456260-00

PATIENT
  Sex: Female
  Weight: 86.26 kg

DRUGS (11)
  1. HUMIRA [Suspect]
     Indication: CROHN'S DISEASE
     Route: 050
     Dates: start: 20080201, end: 20080501
  2. HUMIRA [Suspect]
  3. ZOLPIDEM TARTRATE [Concomitant]
     Indication: INSOMNIA
     Route: 048
  4. CYANOCOBALAMIN [Concomitant]
     Indication: VITAMIN SUPPLEMENTATION
     Route: 050
  5. ESOMEPRAZOLE MAGNESIUM [Concomitant]
     Indication: ABDOMINAL DISCOMFORT
     Dosage: 80MG IN AM, 40MG IN AM
     Route: 048
  6. ERGOCALCIFEROL [Concomitant]
     Indication: VITAMIN SUPPLEMENTATION
     Dosage: S, M, W, F
     Route: 048
  7. RIZATRIPTAN BENZOATE [Concomitant]
     Indication: MIGRAINE
     Route: 048
  8. PROPACET 100 [Concomitant]
     Indication: PAIN
     Dosage: Q6-8H AS NEEDED
     Route: 048
  9. PHENERGAN [Concomitant]
     Indication: NAUSEA
     Route: 048
  10. PHENERGAN [Concomitant]
     Indication: VOMITING
  11. DIAZEPAM [Concomitant]
     Indication: MUSCLE SPASMS
     Route: 048

REACTIONS (9)
  - ABDOMINAL ADHESIONS [None]
  - ABSCESS INTESTINAL [None]
  - CATHETER RELATED COMPLICATION [None]
  - INCISIONAL DRAINAGE [None]
  - INJECTION SITE IRRITATION [None]
  - INJECTION SITE PAIN [None]
  - MALAISE [None]
  - OVARIAN NECROSIS [None]
  - PAIN [None]
